FAERS Safety Report 4852320-4 (Version None)
Quarter: 2005Q4

REPORT INFORMATION
  Report Type: 
  Country: None (occurrence: None)
  Receive Date: 20051123
  Receipt Date: 20050103
  Transmission Date: 20060501
  Serious: Yes (Other)
  Sender: FDA-Public Use
  Company Number: US-JNJFOC-20050100484

PATIENT
  Age: 55 Year
  Sex: Female

DRUGS (1)
  1. LEVAQUIN [Suspect]
     Indication: LUNG DISORDER
     Dosage: INTRAVENOUS
     Route: 042
     Dates: start: 20041201

REACTIONS (1)
  - TORSADE DE POINTES [None]
